FAERS Safety Report 13828042 (Version 1)
Quarter: 2017Q3

REPORT INFORMATION
  Report Type: Spontaneous
  Country: None (occurrence: US)
  Receive Date: 20170802
  Receipt Date: 20170802
  Transmission Date: 20171127
  Serious: Yes (Hospitalization)
  Sender: FDA-Public Use
  Company Number: None

PATIENT
  Age: 5 Year
  Sex: Female
  Weight: 17.8 kg

DRUGS (1)
  1. THIOGUANINE (6-TG) [Suspect]
     Active Substance: THIOGUANINE ANHYDROUS
     Dates: end: 20170727

REACTIONS (8)
  - Abdominal pain [None]
  - Liver function test increased [None]
  - Blood bilirubin increased [None]
  - Alanine aminotransferase increased [None]
  - Venoocclusive disease [None]
  - Ascites [None]
  - Urine output decreased [None]
  - Aspartate aminotransferase increased [None]

NARRATIVE: CASE EVENT DATE: 20170729
